FAERS Safety Report 10919076 (Version 1)
Quarter: 2015Q1

REPORT INFORMATION
  Report Type: Report from Study
  Country: FR (occurrence: FR)
  Receive Date: 20150316
  Receipt Date: 20150316
  Transmission Date: 20150721
  Serious: Yes (Hospitalization, Other)
  Sender: FDA-Public Use
  Company Number: FR-JAZZ-2014-FR-009993

PATIENT
  Age: 32 Year
  Sex: Female
  Weight: 66 kg

DRUGS (12)
  1. XYREM [Suspect]
     Active Substance: SODIUM OXYBATE
     Dosage: DECREASE TO UNK DOSE (OMITTED SECOND  DOSE)
     Route: 048
     Dates: start: 20141219, end: 20141221
  2. XYREM [Suspect]
     Active Substance: SODIUM OXYBATE
     Dosage: 3.75 G TO 4 G TWICE NIGHTLY
     Route: 048
     Dates: start: 20141002, end: 20141103
  3. XYREM [Suspect]
     Active Substance: SODIUM OXYBATE
     Dosage: 3.75 G, BID
     Route: 048
     Dates: start: 20140716, end: 2014
  4. XYREM [Suspect]
     Active Substance: SODIUM OXYBATE
     Dosage: 3.75 G, ONCE OR TWICE NIGHLY (PATIENT USED TO OMIT THE SECOND DOSE)
     Route: 048
     Dates: start: 20141105, end: 20141211
  5. XYREM [Suspect]
     Active Substance: SODIUM OXYBATE
     Dosage: 3 G, BID
     Route: 048
     Dates: start: 20140702, end: 201407
  6. CONCERTA [Concomitant]
     Active Substance: METHYLPHENIDATE HYDROCHLORIDE
     Indication: PRODUCT USED FOR UNKNOWN INDICATION
     Dosage: UNK
  7. VENLAFAXINE [Concomitant]
     Active Substance: VENLAFAXINE HYDROCHLORIDE
     Indication: PRODUCT USED FOR UNKNOWN INDICATION
     Dosage: UNK
  8. MELATONIN [Suspect]
     Active Substance: MELATONIN
     Indication: PRODUCT USED FOR UNKNOWN INDICATION
  9. XYREM [Suspect]
     Active Substance: SODIUM OXYBATE
     Indication: PRODUCT USED FOR UNKNOWN INDICATION
     Dosage: 2.5 G, BID
     Route: 048
     Dates: start: 20140628, end: 2014
  10. XYREM [Suspect]
     Active Substance: SODIUM OXYBATE
     Dosage: 4 G, (ONCE OR TWICE NIGHTLY)
     Route: 048
     Dates: start: 20141212, end: 20141218
  11. XYREM [Suspect]
     Active Substance: SODIUM OXYBATE
     Dosage: 3.75 G, ONCE OR TWICE NIGHTLY (PATIENT USED TO OMIT THE SECOND INTAKE)
     Route: 048
     Dates: start: 20141230, end: 20150228
  12. XYREM [Suspect]
     Active Substance: SODIUM OXYBATE
     Dosage: 4.5 G, BID
     Route: 048
     Dates: start: 20150302

REACTIONS (9)
  - Seizure [Recovered/Resolved]
  - Insomnia [Recovered/Resolved]
  - Somnolence [Recovered/Resolved]
  - Hospitalisation [Recovered/Resolved]
  - Fatigue [Recovered/Resolved with Sequelae]
  - Respiratory disorder [Recovered/Resolved]
  - Influenza [Recovered/Resolved]
  - Sleep paralysis [Recovered/Resolved]
  - Drug dose omission [Recovered/Resolved]

NARRATIVE: CASE EVENT DATE: 20140713
